FAERS Safety Report 17273991 (Version 1)
Quarter: 2020Q1

REPORT INFORMATION
  Report Type: Spontaneous
  Country: US (occurrence: US)
  Receive Date: 20191225
  Receipt Date: 20191225
  Transmission Date: 20200409
  Serious: Yes (Hospitalization)
  Sender: FDA-Public Use
  Company Number: None

PATIENT
  Age: 8 Month
  Sex: Female
  Weight: 11.64 kg

DRUGS (10)
  1. DEXAMETHASONE. [Suspect]
     Active Substance: DEXAMETHASONE
     Dates: end: 20191026
  2. VANCOMYCIN [Concomitant]
     Active Substance: VANCOMYCIN
  3. HYDROCORTISONE. [Suspect]
     Active Substance: HYDROCORTISONE
     Dates: end: 20191027
  4. PREDNISONE. [Suspect]
     Active Substance: PREDNISONE
     Dates: end: 20191006
  5. CYTARABINE. [Suspect]
     Active Substance: CYTARABINE
     Dates: end: 20191019
  6. VINCRISTINE SULFATE. [Suspect]
     Active Substance: VINCRISTINE SULFATE
     Dates: end: 20191027
  7. GENTAMYCIN [Concomitant]
     Active Substance: GENTAMICIN
  8. DAUNORUBICIN [Suspect]
     Active Substance: DAUNORUBICIN
     Dates: end: 20191007
  9. METHOTREXATE. [Suspect]
     Active Substance: METHOTREXATE
     Dates: end: 20191027
  10. ONCASPAR [Suspect]
     Active Substance: PEGASPARGASE
     Dates: end: 20191001

REACTIONS (21)
  - Respirovirus test positive [None]
  - Disseminated intravascular coagulation [None]
  - Acute kidney injury [None]
  - Renal replacement therapy [None]
  - Haematemesis [None]
  - Chromaturia [None]
  - Perianal erythema [None]
  - Leukopenia [None]
  - Sepsis [None]
  - Lipase increased [None]
  - Anal haemorrhage [None]
  - Hyperglycaemia [None]
  - Anal ulcer [None]
  - Neutropenia [None]
  - Rubulavirus test positive [None]
  - Shock haemorrhagic [None]
  - Mouth haemorrhage [None]
  - Urinary tract infection pseudomonal [None]
  - Haemodynamic instability [None]
  - Petechiae [None]
  - Blood urine present [None]

NARRATIVE: CASE EVENT DATE: 20191029
